FAERS Safety Report 8834627 (Version 1)
Quarter: 2012Q4

REPORT INFORMATION
  Report Type: 
  Country: FR (occurrence: FR)
  Receive Date: 20121010
  Receipt Date: 20121010
  Transmission Date: 20130627
  Serious: Yes (Hospitalization, Other)
  Sender: FDA-Public Use
  Company Number: FR-BAYER-2012-093135

PATIENT
  Age: 38 Year
  Sex: Female
  Weight: 65 kg

DRUGS (1)
  1. MIRENA [Suspect]
     Dosage: 20 mcg/24hr, CONT
     Route: 015
     Dates: start: 20110124, end: 20120716

REACTIONS (7)
  - Ectopic pregnancy with intrauterine device [None]
  - Haemorrhagic ovarian cyst [None]
  - Pain [None]
  - Menorrhagia [None]
  - Metrorrhagia [None]
  - Abdominal pain [None]
  - Unevaluable event [None]
